FAERS Safety Report 14524873 (Version 2)
Quarter: 2018Q1

REPORT INFORMATION
  Report Type: Spontaneous
  Country: US (occurrence: US)
  Receive Date: 20180213
  Receipt Date: 20180214
  Transmission Date: 20180509
  Serious: No
  Sender: FDA-Public Use
  Company Number: US-BAYER-2018-022281

PATIENT
  Age: 80 Year
  Sex: Male
  Weight: 79 kg

DRUGS (1)
  1. ALEVE [Suspect]
     Active Substance: NAPROXEN SODIUM
     Indication: SPINAL PAIN
     Dosage: 2 DF, QD
     Route: 048
     Dates: start: 20180101

REACTIONS (5)
  - Product use issue [Unknown]
  - Off label use [Unknown]
  - Product use in unapproved indication [Unknown]
  - Circumstance or information capable of leading to medication error [Unknown]
  - Drug administration error [None]

NARRATIVE: CASE EVENT DATE: 20180101
